FAERS Safety Report 24528535 (Version 2)
Quarter: 2024Q4

REPORT INFORMATION
  Report Type: Spontaneous
  Country: IT (occurrence: IT)
  Receive Date: 20241021
  Receipt Date: 20241206
  Transmission Date: 20250114
  Serious: Yes (Hospitalization)
  Sender: VELOXIS PHARMACEUTICALS
  Company Number: IT-VELOXIS PHARMACEUTICALS, INC.-2024-VEL-00548

PATIENT
  Age: 17 Year
  Sex: Female

DRUGS (2)
  1. TACROLIMUS [Suspect]
     Active Substance: TACROLIMUS
     Indication: Lupus nephritis
     Dosage: UNK
     Route: 065
  2. RITUXIMAB [Suspect]
     Active Substance: RITUXIMAB
     Indication: Lupus nephritis
     Dosage: 600 MILLIGRAM/SQ. METER, 1 INFUSION, EVERY 2 WEEKS
     Route: 065

REACTIONS (2)
  - Proteinuria [Recovered/Resolved]
  - Product use issue [Unknown]
